FAERS Safety Report 9861191 (Version 1)
Quarter: 2014Q1

REPORT INFORMATION
  Report Type: Spontaneous
  Country: JP (occurrence: JP)
  Receive Date: 20140202
  Receipt Date: 20140202
  Transmission Date: 20141002
  Serious: No
  Sender: FDA-Public Use
  Company Number: JP-ALLERGAN-1304167US

PATIENT
  Age: 42 Year
  Sex: Female
  Weight: 44 kg

DRUGS (1)
  1. BOTOX VISTA [Suspect]
     Indication: SKIN WRINKLING
     Dosage: 21 UNITS, SINGLE
     Route: 030
     Dates: start: 20130311, end: 20130311

REACTIONS (4)
  - Nausea [Recovered/Resolved]
  - Abdominal pain [Recovered/Resolved]
  - Diarrhoea [Recovered/Resolved]
  - Pyrexia [Recovered/Resolved]
